FAERS Safety Report 11719860 (Version 2)
Quarter: 2015Q4

REPORT INFORMATION
  Report Type: Spontaneous
  Country: MX (occurrence: MX)
  Receive Date: 20151110
  Receipt Date: 20151204
  Transmission Date: 20160304
  Serious: Yes (Hospitalization, Other)
  Sender: FDA-Public Use
  Company Number: MX-ROCHE-1646761

PATIENT
  Age: 14 Year
  Sex: Female
  Weight: 65 kg

DRUGS (3)
  1. XOLAIR [Suspect]
     Active Substance: OMALIZUMAB
     Indication: DERMATITIS ATOPIC
     Route: 058
  2. LEVOCETIRIZINE [Concomitant]
     Active Substance: LEVOCETIRIZINE
     Route: 065
  3. XOLAIR [Suspect]
     Active Substance: OMALIZUMAB
     Route: 058
     Dates: start: 20150101, end: 20150830

REACTIONS (12)
  - Bicytopenia [Unknown]
  - Dyspnoea [Unknown]
  - Product use issue [Unknown]
  - Thrombocytopenia [Not Recovered/Not Resolved]
  - Leukopenia [Unknown]
  - Gait disturbance [Unknown]
  - Myelodysplastic syndrome [Not Recovered/Not Resolved]
  - Vomiting [Unknown]
  - Haemoglobin decreased [Not Recovered/Not Resolved]
  - Marrow hyperplasia [Unknown]
  - Fatigue [Unknown]
  - Pallor [Unknown]

NARRATIVE: CASE EVENT DATE: 201509
